FAERS Safety Report 5723281-0 (Version None)
Quarter: 2008Q2

REPORT INFORMATION
  Report Type: 
  Country: None (occurrence: None)
  Receive Date: 20080430
  Receipt Date: 20080421
  Transmission Date: 20081010
  Serious: Yes (Other)
  Sender: FDA-Public Use
  Company Number: US-ROCHE-560051

PATIENT
  Age: 80 Year
  Sex: Female

DRUGS (3)
  1. BONIVA [Suspect]
     Indication: OSTEOPOROSIS
     Dosage: ON THE FOURTH DAY OF EVERY MONTH
     Route: 048
     Dates: start: 20070101
  2. MIACALCIN [Concomitant]
     Indication: OSTEOPOROSIS
  3. VITAMINS AND MINERALS [Concomitant]

REACTIONS (1)
  - BREAST CANCER [None]
